FAERS Safety Report 18011422 (Version 1)
Quarter: 2020Q3

REPORT INFORMATION
  Report Type: Report from Study
  Country: None (occurrence: CA)
  Receive Date: 20200712
  Receipt Date: 20200712
  Transmission Date: 20201103
  Serious: Yes (Hospitalization, Other)
  Sender: FDA-Public Use
  Company Number: CA-ABBVIE-20K-028-3474687-00

PATIENT
  Age: 37 Year
  Sex: Female

DRUGS (1)
  1. SKYRIZI [Suspect]
     Active Substance: RISANKIZUMAB-RZAA
     Indication: PSORIASIS
     Route: 058
     Dates: start: 20190705

REACTIONS (7)
  - Vascular procedure complication [Recovering/Resolving]
  - Cholecystectomy [Unknown]
  - Vital functions abnormal [Unknown]
  - Hepatobiliary procedural complication [Recovering/Resolving]
  - Post procedural complication [Recovering/Resolving]
  - Foreign body [Recovering/Resolving]
  - Pain [Not Recovered/Not Resolved]

NARRATIVE: CASE EVENT DATE: 202005
